FAERS Safety Report 23717573 (Version 1)
Quarter: 2024Q2

REPORT INFORMATION
  Report Type: Spontaneous
  Country: US (occurrence: US)
  Receive Date: 20240408
  Receipt Date: 20240408
  Transmission Date: 20240716
  Serious: Yes (Hospitalization, Other)
  Sender: FDA-Public Use
  Company Number: US-AMNEAL PHARMACEUTICALS-2024-AMRX-01121

PATIENT
  Age: 37 Year
  Sex: Female

DRUGS (1)
  1. ADRENACLICK [Suspect]
     Active Substance: EPINEPHRINE
     Indication: Product used for unknown indication
     Dosage: 10 MILLIGRAM
     Route: 058

REACTIONS (5)
  - Cardiotoxicity [Recovering/Resolving]
  - Ischaemic stroke [Unknown]
  - Toxicity to various agents [Unknown]
  - Stress cardiomyopathy [Recovering/Resolving]
  - Pulmonary oedema [Unknown]
